FAERS Safety Report 21241415 (Version 3)
Quarter: 2023Q1

REPORT INFORMATION
  Report Type: Report from Study
  Country: IT (occurrence: IT)
  Receive Date: 20220823
  Receipt Date: 20230313
  Transmission Date: 20230418
  Serious: Yes (Other)
  Sender: FDA-Public Use
  Company Number: IT-UCBSA-2022048516

PATIENT
  Sex: Female

DRUGS (1)
  1. LEVETIRACETAM [Suspect]
     Active Substance: LEVETIRACETAM
     Indication: Product used for unknown indication
     Dosage: 500 MILLIGRAM, 60 FILM-COATED TABLETS

REACTIONS (10)
  - Benign breast neoplasm [Unknown]
  - Breast cyst [Unknown]
  - Mole excision [Unknown]
  - Blood prolactin increased [Unknown]
  - Galactorrhoea [Unknown]
  - Lymphocytosis [Unknown]
  - Tension [Unknown]
  - Hypersensitivity [Not Recovered/Not Resolved]
  - Breast mass [Unknown]
  - Pruritus [Unknown]

NARRATIVE: CASE EVENT DATE: 20230101
